FAERS Safety Report 8944901 (Version 2)
Quarter: 2012Q4

REPORT INFORMATION
  Report Type: 
  Country: US (occurrence: US)
  Receive Date: 20121204
  Receipt Date: 20121206
  Transmission Date: 20130627
  Serious: No
  Sender: FDA-Public Use
  Company Number: US-009507513-1212USA001153

PATIENT
  Age: 43 Year
  Sex: Female

DRUGS (7)
  1. CLARITIN-D 12 HOUR [Suspect]
     Indication: NASOPHARYNGITIS
     Dosage: 5 mg, Once
     Route: 048
     Dates: start: 20121016, end: 20121016
  2. CLARITIN-D 12 HOUR [Suspect]
     Indication: UPPER RESPIRATORY TRACT CONGESTION
  3. CLARITIN-D 12 HOUR [Suspect]
     Indication: RHINORRHOEA
  4. CLARITIN-D 12 HOUR [Suspect]
     Indication: THROAT IRRITATION
  5. CLARITIN-D 12 HOUR [Suspect]
     Indication: MEDICAL OBSERVATION
  6. TRIAMTERENE [Concomitant]
     Indication: HYPERTENSION
     Dosage: UNK, Unknown
  7. SIMVASTATIN [Concomitant]
     Indication: BLOOD CHOLESTEROL INCREASED
     Dosage: UNK, Unknown

REACTIONS (3)
  - Change in sustained attention [Recovered/Resolved]
  - Dizziness [Recovered/Resolved]
  - Feeling drunk [Recovered/Resolved]
